FAERS Safety Report 24230844 (Version 4)
Quarter: 2024Q4

REPORT INFORMATION
  Report Type: Report from Study
  Country: GB (occurrence: GB)
  Receive Date: 20240821
  Receipt Date: 20241211
  Transmission Date: 20250115
  Serious: Yes (Hospitalization)
  Sender: ROCHE
  Company Number: GB-ROCHE-10000057873

PATIENT
  Age: 55 Year
  Sex: Female
  Weight: 69.0 kg

DRUGS (20)
  1. OCRELIZUMAB [Suspect]
     Active Substance: OCRELIZUMAB
     Indication: Relapsing-remitting multiple sclerosis
     Dosage: DOSE LAST STUDY DRUG ADMIN PRIOR AE/SAE IS 600 MG?START DATE OF MOST RECENT DOSE OF STUDY DRUG?PRIOR
     Route: 042
     Dates: start: 20201207
  2. OCRELIZUMAB [Suspect]
     Active Substance: OCRELIZUMAB
     Dosage: DOSE LAST STUDY DRUG ADMIN PRIOR AE/SAE IS 600 MG?START DATE OF MOST RECENT DOSE OF STUDY DRUG?PRIOR
     Route: 042
     Dates: start: 20201221, end: 20201221
  3. OCRELIZUMAB [Suspect]
     Active Substance: OCRELIZUMAB
     Dosage: DOSE LAST STUDY DRUG ADMIN PRIOR AE/SAE IS 600 MG?START DATE OF MOST RECENT DOSE OF STUDY DRUG?PRIOR
     Route: 042
     Dates: start: 20220629, end: 20220629
  4. OCRELIZUMAB [Suspect]
     Active Substance: OCRELIZUMAB
     Dosage: DOSE LAST STUDY DRUG ADMIN PRIOR AE/SAE IS 600 MG?START DATE OF MOST RECENT DOSE OF STUDY DRUG?PRIOR
     Route: 042
     Dates: start: 20240221, end: 20240221
  5. OCRELIZUMAB [Suspect]
     Active Substance: OCRELIZUMAB
     Dosage: DOSE LAST STUDY DRUG ADMIN PRIOR AE/SAE IS 600 MG?START DATE OF MOST RECENT DOSE OF STUDY DRUG?PRIOR
     Route: 042
     Dates: start: 20230803, end: 20230803
  6. OCRELIZUMAB [Suspect]
     Active Substance: OCRELIZUMAB
     Dosage: DOSE LAST STUDY DRUG ADMIN PRIOR AE/SAE IS 600 MG?START DATE OF MOST RECENT DOSE OF STUDY DRUG?PRIOR
     Route: 042
     Dates: start: 20211229, end: 20211229
  7. OCRELIZUMAB [Suspect]
     Active Substance: OCRELIZUMAB
     Dosage: DOSE LAST STUDY DRUG ADMIN PRIOR AE/SAE IS 600 MG?START DATE OF MOST RECENT DOSE OF STUDY DRUG?PRIOR
     Route: 042
     Dates: start: 20230111, end: 20230111
  8. OCRELIZUMAB [Suspect]
     Active Substance: OCRELIZUMAB
     Dosage: DOSE LAST STUDY DRUG ADMIN PRIOR AE/SAE IS 600 MG?START DATE OF MOST RECENT DOSE OF STUDY DRUG?PRIOR
     Route: 042
     Dates: start: 20210705, end: 20210705
  9. VITAMIN D FOR WELLBEING [Concomitant]
     Indication: Prophylaxis
     Route: 048
     Dates: start: 20060101
  10. PREGABILIN [Concomitant]
     Route: 048
  11. TIZANIDINE [Concomitant]
     Active Substance: TIZANIDINE
     Route: 048
  12. LISINOPRIL [Concomitant]
     Active Substance: LISINOPRIL
     Route: 048
  13. BENDROFLUMETHIAZIAZDE [Concomitant]
     Route: 048
  14. MODAFINIL [Concomitant]
     Active Substance: MODAFINIL
     Route: 048
  15. ESTRADIOL [Concomitant]
     Active Substance: ESTRADIOL
     Route: 062
  16. ESTRADIOL [Concomitant]
     Active Substance: ESTRADIOL
     Route: 067
  17. PROGESTERONE [Concomitant]
     Active Substance: PROGESTERONE
     Route: 048
  18. TESTOSTERONE [Concomitant]
     Active Substance: TESTOSTERONE
     Route: 062
  19. NITROFURANTOIN [Concomitant]
     Active Substance: NITROFURANTOIN
     Route: 048
  20. DEMANNOSE [Concomitant]
     Active Substance: DEMANNOSE
     Route: 048

REACTIONS (2)
  - Urosepsis [Recovered/Resolved]
  - Clostridium difficile infection [Recovered/Resolved]

NARRATIVE: CASE EVENT DATE: 20240601
